FAERS Safety Report 17849215 (Version 3)
Quarter: 2020Q3

REPORT INFORMATION
  Report Type: Spontaneous
  Country: GB (occurrence: GB)
  Receive Date: 20200602
  Receipt Date: 20200703
  Transmission Date: 20201103
  Serious: Yes (Other)
  Sender: FDA-Public Use
  Company Number: GB-SA-2020SA137842

PATIENT

DRUGS (1)
  1. THYMOGLOBULINE [Suspect]
     Active Substance: LAPINE T-LYMPHOCYTE IMMUNE GLOBULIN
     Dosage: 2.5 MG/KG (RECEIVED 3 DOSES AS PER PROTOCOL)
     Route: 042

REACTIONS (6)
  - Methaemoglobinaemia [Unknown]
  - Gastrointestinal stoma complication [Recovered/Resolved]
  - Drug hypersensitivity [Unknown]
  - Blood creatinine increased [Recovered/Resolved]
  - Acute kidney injury [Unknown]
  - Oxygen saturation decreased [Unknown]
